FAERS Safety Report 9079238 (Version 1)
Quarter: 2013Q1

REPORT INFORMATION
  Report Type: Report from Study
  Country: US (occurrence: US)
  Receive Date: 20130130
  Receipt Date: 20130130
  Transmission Date: 20140127
  Serious: Yes (Hospitalization)
  Sender: FDA-Public Use
  Company Number: US-ABBOTT-12P-163-0956949-00

PATIENT
  Age: 28 Year
  Sex: Female

DRUGS (2)
  1. HUMIRA 40 MG/0.8 ML PEN [Suspect]
     Indication: CROHN^S DISEASE
  2. HUMIRA 40 MG/0.8 ML PEN [Suspect]
     Dates: start: 20120418

REACTIONS (6)
  - Herpes zoster infection neurological [Recovered/Resolved]
  - Microcytic anaemia [Unknown]
  - Cellulitis [Unknown]
  - Immunosuppression [Unknown]
  - Neutropenia [Unknown]
  - Bacterial infection [Unknown]
